FAERS Safety Report 9668695 (Version 3)
Quarter: 2014Q1

REPORT INFORMATION
  Report Type: Spontaneous
  Country: US (occurrence: US)
  Receive Date: 20131105
  Receipt Date: 20140312
  Transmission Date: 20141002
  Serious: Yes (Hospitalization)
  Sender: FDA-Public Use
  Company Number: US-BAYER-2013-133333

PATIENT
  Age: 37 Year
  Sex: Female
  Weight: 81.63 kg

DRUGS (21)
  1. YASMIN [Suspect]
     Indication: CONTRACEPTION
     Dosage: UNK
     Dates: start: 200111, end: 200411
  2. ZANTAC [Concomitant]
  3. CLEOCIN [Concomitant]
     Dosage: UNK
     Dates: start: 20040827
  4. SYNTHROID [Concomitant]
  5. ACTONEL [Concomitant]
  6. LIDODERM [Concomitant]
     Dosage: UNK
     Dates: start: 20040924
  7. GYNAZOLE [Concomitant]
     Dosage: UNK
     Dates: start: 20041002
  8. FOLIC ACID [Concomitant]
  9. TYLENOL #3 [Concomitant]
  10. FLOVENT [Concomitant]
  11. ALBUTEROL [Concomitant]
  12. BACTRIM [Concomitant]
  13. TREXALL [METHOTREXATE] [Concomitant]
  14. PREDNISONE [Concomitant]
  15. FIORICET [Concomitant]
  16. AMBIEN [Concomitant]
  17. DILANTIN [Concomitant]
     Indication: CONVULSION PROPHYLAXIS
  18. CODEINE [Concomitant]
     Indication: HEADACHE
  19. REGLAN [Concomitant]
     Dosage: 10 MG, UNK
     Route: 041
  20. TORADOL [Concomitant]
     Dosage: 3 MG, UNK
     Route: 041
  21. METHOTREXATE [Concomitant]

REACTIONS (4)
  - Cerebrovascular accident [None]
  - Transverse sinus thrombosis [Recovered/Resolved]
  - Jugular vein thrombosis [Recovered/Resolved]
  - Cavernous sinus thrombosis [Recovered/Resolved]
